FAERS Safety Report 10094933 (Version 1)
Quarter: 2014Q2

REPORT INFORMATION
  Report Type: Report from Study
  Country: CA (occurrence: CA)
  Receive Date: 20140422
  Receipt Date: 20140422
  Transmission Date: 20141212
  Serious: Yes (Other)
  Sender: FDA-Public Use
  Company Number: CA-JNJFOC-20140411800

PATIENT
  Age: 56 Year
  Sex: Female
  Weight: 56.8 kg

DRUGS (5)
  1. REMICADE [Suspect]
     Indication: CROHN^S DISEASE
     Route: 042
     Dates: start: 200604
  2. VITAMIN B12 [Concomitant]
     Route: 065
  3. QUESTRAN [Concomitant]
     Dosage: 1 PK
     Route: 065
  4. BABY ASPIRIN [Concomitant]
     Dosage: EVERY OTHER DAY
     Route: 065
  5. MULTIVITAMINS, [Concomitant]
     Route: 065

REACTIONS (1)
  - Vaginal fistula [Unknown]
